FAERS Safety Report 5278530-2 (Version None)
Quarter: 2007Q1

REPORT INFORMATION
  Report Type: 
  Country: None (occurrence: None)
  Receive Date: 20070328
  Receipt Date: 20070327
  Transmission Date: 20070707
  Serious: Yes (Death)
  Sender: FDA-Public Use
  Company Number: IE-BRISTOL-MYERS SQUIBB COMPANY-13727896

PATIENT
  Age: 36 Year
  Sex: Female

DRUGS (3)
  1. MODECATE INJ [Suspect]
     Indication: MENTAL DISORDER
  2. KEMADRIN [Concomitant]
  3. HALOPERIDOL [Concomitant]

REACTIONS (6)
  - ASTHENIA [None]
  - CARDIO-RESPIRATORY ARREST [None]
  - DILATATION VENTRICULAR [None]
  - DYSTONIA [None]
  - MUSCLE RIGIDITY [None]
  - VOMITING [None]
